FAERS Safety Report 12480700 (Version 1)
Quarter: 2016Q2

REPORT INFORMATION
  Report Type: Spontaneous
  Country: SI (occurrence: SI)
  Receive Date: 20160620
  Receipt Date: 20160620
  Transmission Date: 20160815
  Serious: Yes (Hospitalization)
  Sender: FDA-Public Use
  Company Number: SI-FRESENIUS KABI-FK201603679

PATIENT
  Age: 87 Year
  Sex: Female
  Weight: 57 kg

DRUGS (4)
  1. ADALAT OROS 30MG [Concomitant]
     Indication: HYPERTENSION
     Route: 048
     Dates: start: 20160510, end: 20160514
  2. CONET [Concomitant]
     Indication: URINARY TRACT INFECTION
  3. CONET [Concomitant]
     Indication: INFLAMMATION
     Route: 042
     Dates: start: 20160503, end: 20160512
  4. VANCOMYCIN KABI 1000MG [Suspect]
     Active Substance: VANCOMYCIN HYDROCHLORIDE
     Indication: INFLAMMATION
     Route: 041
     Dates: start: 20160503, end: 20160512

REACTIONS (1)
  - Dermatitis bullous [Recovering/Resolving]

NARRATIVE: CASE EVENT DATE: 20160513
